FAERS Safety Report 6196294-5 (Version None)
Quarter: 2009Q2

REPORT INFORMATION
  Report Type: 
  Country: None (occurrence: None)
  Receive Date: 20090520
  Receipt Date: 20090513
  Transmission Date: 20091009
  Serious: Yes (Hospitalization)
  Sender: FDA-Public Use
  Company Number: BR-PFIZER INC-2009212509

PATIENT
  Age: 57 Year

DRUGS (13)
  1. NAPROXEN [Suspect]
     Dosage: UNK
     Route: 048
     Dates: start: 20071020, end: 20090512
  2. BLINDED *PLACEBO [Suspect]
     Dosage: UNK
     Route: 048
     Dates: start: 20071020, end: 20090512
  3. BLINDED CELECOXIB [Suspect]
     Dosage: UNK
     Route: 048
     Dates: start: 20071020, end: 20090512
  4. IBUPROFEN [Suspect]
     Dosage: UNK
     Route: 048
     Dates: start: 20071020, end: 20090512
  5. NAPROXEN [Suspect]
     Dosage: UNK
     Route: 048
     Dates: start: 20071020, end: 20090512
  6. ESOMEPRAZOLE [Concomitant]
     Dosage: UNK
     Route: 048
     Dates: start: 20071020, end: 20090512
  7. CLONAZEPAM [Concomitant]
     Dosage: UNK
     Route: 048
     Dates: start: 20080816
  8. VERAPAMIL [Concomitant]
     Dosage: UNK
     Route: 048
     Dates: start: 20061001, end: 20090505
  9. LEVOTHYROXINE [Concomitant]
     Dosage: UNK
     Route: 048
     Dates: start: 20050901
  10. SIBUTRAMINE [Concomitant]
     Dosage: UNK
     Route: 048
     Dates: start: 20080417, end: 20090505
  11. AMIODARONE [Concomitant]
     Dosage: UNK
     Route: 048
     Dates: start: 20090505
  12. ENALAPRIL [Concomitant]
     Dosage: UNK
     Route: 048
     Dates: start: 20090505
  13. AAS [Concomitant]
     Dosage: UNK
     Route: 048
     Dates: start: 20090505

REACTIONS (1)
  - PULMONARY HYPERTENSION [None]
